FAERS Safety Report 15244401 (Version 1)
Quarter: 2018Q3

REPORT INFORMATION
  Report Type: Spontaneous
  Country: FR (occurrence: FR)
  Receive Date: 20180806
  Receipt Date: 20180806
  Transmission Date: 20181010
  Serious: Yes (Other)
  Sender: FDA-Public Use
  Company Number: FR-MYLANLABS-2018M1057660

PATIENT
  Age: 59 Year
  Sex: Female

DRUGS (1)
  1. IMATINIB [Suspect]
     Active Substance: IMATINIB
     Indication: CHRONIC MYELOID LEUKAEMIA
     Dosage: UNK
     Route: 065

REACTIONS (8)
  - Disseminated intravascular coagulation [Recovering/Resolving]
  - Hepatomegaly [Recovering/Resolving]
  - Night sweats [Recovering/Resolving]
  - Cytomegalovirus test positive [Recovering/Resolving]
  - Pyrexia [Recovering/Resolving]
  - Epstein-Barr virus associated lymphoproliferative disorder [Recovering/Resolving]
  - Splenomegaly [Recovering/Resolving]
  - Pancytopenia [Recovering/Resolving]
